FAERS Safety Report 23327374 (Version 1)
Quarter: 2023Q4

REPORT INFORMATION
  Report Type: Report from Study
  Country: CN (occurrence: CN)
  Receive Date: 20231221
  Receipt Date: 20231221
  Transmission Date: 20240109
  Serious: No
  Sender: FDA-Public Use
  Company Number: CN-PFIZER INC-PV202300204948

PATIENT
  Age: 83 Year
  Sex: Male
  Weight: 65 kg

DRUGS (17)
  1. NIRMATRELVIR\RITONAVIR [Suspect]
     Active Substance: NIRMATRELVIR\RITONAVIR
     Indication: COVID-19 treatment
     Dosage: [NIRMATRELVIR 150 MG]/[RITONAVIR 100 MG], 2X/DAY
     Dates: start: 20220610, end: 20220615
  2. NIRMATRELVIR\RITONAVIR [Suspect]
     Active Substance: NIRMATRELVIR\RITONAVIR
     Dosage: [NIRMATRELVIR 300 MG]/[RITONAVIR 100 MG], 2X/DAY
     Dates: start: 20220616, end: 20220619
  3. ASPIRIN [Concomitant]
     Active Substance: ASPIRIN
     Indication: Hypertension
     Dosage: ENTERIC-COATED TABLETS
     Route: 048
     Dates: start: 20220610, end: 20220610
  4. HEPARIN CALCIUM [Concomitant]
     Active Substance: HEPARIN CALCIUM
     Indication: COVID-19
     Dosage: UNK
     Route: 058
     Dates: start: 20220610, end: 20220622
  5. THYMALFASIN [Concomitant]
     Active Substance: THYMALFASIN
     Indication: COVID-19
     Dosage: UNK
     Route: 058
     Dates: start: 20220610, end: 20220622
  6. OMEPRAZOLE SODIUM [Concomitant]
     Active Substance: OMEPRAZOLE SODIUM
     Indication: Prophylaxis
     Dosage: UNK
     Route: 042
     Dates: start: 20220610, end: 20220622
  7. INTERFERON ALFA-2B [Concomitant]
     Active Substance: INTERFERON ALFA-2B
     Indication: COVID-19
     Dosage: RECOMBINANT HUMAN INTERFERON A2B SPRAY
     Route: 055
     Dates: start: 20220610, end: 20220622
  8. ATORVASTATIN CALCIUM [Concomitant]
     Active Substance: ATORVASTATIN CALCIUM
     Indication: Coronary artery disease
     Dosage: UNK
     Route: 048
     Dates: start: 20220610, end: 20220622
  9. OLMESARTAN MEDOXOMIL [Concomitant]
     Active Substance: OLMESARTAN MEDOXOMIL
     Indication: Hypertension
     Dosage: UNK
     Route: 048
     Dates: start: 20220610, end: 20220622
  10. NIFEDIPINE [Concomitant]
     Active Substance: NIFEDIPINE
     Indication: Hypertension
     Dosage: CONTROLLED-RELEASE TABLETS
     Route: 048
     Dates: start: 20220610, end: 20220622
  11. LACTULOSE [Concomitant]
     Active Substance: LACTULOSE
     Indication: Laxative supportive care
     Dosage: UNK
     Route: 048
     Dates: start: 20220614, end: 20220622
  12. ASPIRIN [Concomitant]
     Active Substance: ASPIRIN
     Indication: Coronary artery disease
     Dosage: ENTERIC-COATED TABLETS
     Route: 048
     Dates: start: 20220616, end: 20220622
  13. ESOMEPRAZOLE MAGNESIUM [Concomitant]
     Active Substance: ESOMEPRAZOLE MAGNESIUM
     Indication: Prophylaxis
     Dosage: ENTERIC-COATED CAPSULES
     Route: 048
     Dates: start: 20220619, end: 20220622
  14. HERBALS\DIAMMONIUM GLYCYRRHIZINATE [Concomitant]
     Active Substance: HERBALS\DIAMMONIUM GLYCYRRHIZINATE
     Indication: Prophylaxis
     Dosage: ENTERIC-COATED TABLETS
     Route: 048
     Dates: start: 20220610, end: 20220622
  15. REDUCED GLUTATHIONE [Concomitant]
     Indication: Detoxification
     Dosage: UNK
     Route: 048
     Dates: start: 20220619, end: 20220622
  16. DAN NING [Concomitant]
     Indication: Drug therapy
     Dosage: UNK
     Route: 048
     Dates: start: 20220620, end: 20220622
  17. AMLODIPINE BESYLATE [Concomitant]
     Active Substance: AMLODIPINE BESYLATE
     Dosage: UNK
     Route: 048
     Dates: start: 20220610

REACTIONS (1)
  - Overdose [Unknown]
